FAERS Safety Report 25297287 (Version 3)
Quarter: 2025Q3

REPORT INFORMATION
  Report Type: Report from Study
  Country: US (occurrence: US)
  Receive Date: 20250511
  Receipt Date: 20250807
  Transmission Date: 20251021
  Serious: No
  Sender: ABBVIE
  Company Number: US-ABBVIE-6263665

PATIENT
  Age: 65 Year
  Sex: Female
  Weight: 136.07 kg

DRUGS (6)
  1. RINVOQ [Suspect]
     Active Substance: UPADACITINIB
     Indication: Colitis ulcerative
     Dosage: FORM STRENGTH: 30S MILLIGRAM
     Route: 048
     Dates: start: 20240710
  2. FLUOXETINE [Concomitant]
     Active Substance: FLUOXETINE HYDROCHLORIDE
     Indication: Anxiety
  3. DEXILANT [Concomitant]
     Active Substance: DEXLANSOPRAZOLE
     Indication: Gastrooesophageal reflux disease
  4. LOSARTAN POTASSIUM [Concomitant]
     Active Substance: LOSARTAN POTASSIUM
     Indication: Hypertension
  5. LEVOXYL [Concomitant]
     Active Substance: LEVOTHYROXINE SODIUM
     Indication: Thyroiditis
  6. PRALUENT [Concomitant]
     Active Substance: ALIROCUMAB
     Indication: Blood cholesterol increased
     Route: 058

REACTIONS (10)
  - Hepatomegaly [Unknown]
  - Alanine aminotransferase increased [Recovering/Resolving]
  - Urinary tract infection [Recovering/Resolving]
  - Aspartate aminotransferase increased [Recovering/Resolving]
  - Liver injury [Unknown]
  - Liver function test increased [Unknown]
  - Urinary tract infection [Recovered/Resolved]
  - Blood iron increased [Unknown]
  - Serum ferritin increased [Unknown]
  - Osteoporosis [Unknown]

NARRATIVE: CASE EVENT DATE: 20250331
